FAERS Safety Report 22210415 (Version 3)
Quarter: 2024Q1

REPORT INFORMATION
  Report Type: Report from Study
  Country: CZ (occurrence: CZ)
  Receive Date: 20230414
  Receipt Date: 20240306
  Transmission Date: 20240409
  Serious: Yes (Hospitalization, Other)
  Sender: FDA-Public Use
  Company Number: CZ-CELLTRION INC.-2022CZ022339

PATIENT

DRUGS (99)
  1. RITUXIMAB [Suspect]
     Active Substance: RITUXIMAB
     Indication: Diffuse large B-cell lymphoma stage III
     Dosage: 375 MG/M2, EVERY 3 WEEKS, R-CHOP
     Route: 042
     Dates: start: 20220419
  2. RITUXIMAB [Suspect]
     Active Substance: RITUXIMAB
     Indication: Diffuse large B-cell lymphoma
     Dosage: UNK, 1Q3W/UNK, EVERY 3 WEEKS
     Route: 042
  3. RITUXIMAB [Suspect]
     Active Substance: RITUXIMAB
     Dosage: 375 MG/M2 EVERY 3 WEEKS / R CHOP/ R-CHOP, C1D1 -
     Route: 042
     Dates: start: 20220419
  4. RITUXIMAB [Suspect]
     Active Substance: RITUXIMAB
     Dosage: R CHOP
     Route: 042
     Dates: start: 20220419
  5. DOXORUBICIN HYDROCHLORIDE [Suspect]
     Active Substance: DOXORUBICIN HYDROCHLORIDE
     Indication: Diffuse large B-cell lymphoma stage III
     Dosage: UNK, EVERY 3 WEEKS
     Route: 042
  6. DOXORUBICIN HYDROCHLORIDE [Suspect]
     Active Substance: DOXORUBICIN HYDROCHLORIDE
     Indication: Diffuse large B-cell lymphoma
     Dosage: 50 MG/M2, EVERY 3 WEEK, R-CHOP
     Route: 042
     Dates: start: 20220419, end: 20220419
  7. DOXORUBICIN HYDROCHLORIDE [Suspect]
     Active Substance: DOXORUBICIN HYDROCHLORIDE
     Indication: Diffuse large B-cell lymphoma stage III
     Dosage: 50 MG/M2, EVERY 3 WEEKS (R-CHOP, C1D1 - )
     Route: 042
     Dates: start: 20220419, end: 20220419
  8. CYCLOPHOSPHAMIDE [Suspect]
     Active Substance: CYCLOPHOSPHAMIDE
     Indication: Diffuse large B-cell lymphoma stage III
     Dosage: UNK, EVERY 3 WEEKS/UNK, EVERY 3 WK, R-CHOP
     Route: 042
  9. CYCLOPHOSPHAMIDE [Suspect]
     Active Substance: CYCLOPHOSPHAMIDE
     Indication: Diffuse large B-cell lymphoma
     Dosage: 750 MG/M2 EVERY 3 WEEKS/UNK, EVERY 3 WK, R-CHOP/R-CHOP, C1D1 -
     Route: 042
     Dates: start: 20220419, end: 20220419
  10. CYCLOPHOSPHAMIDE [Suspect]
     Active Substance: CYCLOPHOSPHAMIDE
     Dosage: UNK, EVERY 3 WEEKS
  11. CYCLOPHOSPHAMIDE [Suspect]
     Active Substance: CYCLOPHOSPHAMIDE
     Dosage: R-CHOP
     Route: 042
     Dates: start: 20220419
  12. EPCORITAMAB [Suspect]
     Active Substance: EPCORITAMAB
     Indication: Diffuse large B-cell lymphoma stage III
     Dosage: REGIMEN#1: UNK
     Route: 058
  13. EPCORITAMAB [Suspect]
     Active Substance: EPCORITAMAB
     Indication: Diffuse large B-cell lymphoma
     Dosage: REGIMEN#2: FULL DOSE 48 MG, WEEKLY
     Route: 058
     Dates: start: 20220503
  14. EPCORITAMAB [Suspect]
     Active Substance: EPCORITAMAB
     Dosage: PRIMING DOSE: 0.16 MG, SINGLE
     Route: 058
     Dates: start: 20220419, end: 20220419
  15. EPCORITAMAB [Suspect]
     Active Substance: EPCORITAMAB
     Dosage: INTERMEDIATE DOSE: 0.8 MG, SINGLE
     Route: 058
     Dates: start: 20220426, end: 20220426
  16. EPCORITAMAB [Suspect]
     Active Substance: EPCORITAMAB
     Dosage: UNK
  17. EPCORITAMAB [Suspect]
     Active Substance: EPCORITAMAB
     Indication: Diffuse large B-cell lymphoma stage III
     Dosage: 0.8 MG, TOTAL (INTERMEDIATE DOSE: 0.8 MG, SINGLE, C1D8)
     Route: 058
     Dates: start: 20220426, end: 20220426
  18. EPCORITAMAB [Suspect]
     Active Substance: EPCORITAMAB
     Dosage: 48 MG, 1/WEEK (FULL DOSE: 48 MG, WEEKLY, C1D15)
     Route: 058
     Dates: start: 20220503
  19. EPCORITAMAB [Suspect]
     Active Substance: EPCORITAMAB
     Dosage: 0.16 MG, TOTAL (PRIMING DOSE: 0.16 MG, SINGLE, C1D1)
     Route: 058
     Dates: start: 20220419, end: 20220419
  20. VINCRISTINE SULFATE [Suspect]
     Active Substance: VINCRISTINE SULFATE
     Indication: Diffuse large B-cell lymphoma stage III
     Dosage: 1.4 MG/M2, EVERY 3 WEEKS, R-CHOP
     Route: 042
     Dates: start: 20220419, end: 20220419
  21. VINCRISTINE SULFATE [Suspect]
     Active Substance: VINCRISTINE SULFATE
     Dosage: UNK, EVERY 3 WK, R-CHOP
     Route: 042
  22. VINCRISTINE SULFATE [Suspect]
     Active Substance: VINCRISTINE SULFATE
     Dosage: UNK, EVERY 3 WK, R-CHOP
     Route: 042
     Dates: start: 20220419, end: 20220419
  23. VINCRISTINE SULFATE [Suspect]
     Active Substance: VINCRISTINE SULFATE
     Dosage: UNK. EVERY 3 WEEKS
  24. VINCRISTINE SULFATE [Suspect]
     Active Substance: VINCRISTINE SULFATE
     Dosage: 1.4 MG/M2, EVERY 3 WEEKS, R-CHOP/R-CHOP, C1D1 -
     Route: 042
     Dates: start: 20220419
  25. PREDNISONE [Suspect]
     Active Substance: PREDNISONE
     Indication: Diffuse large B-cell lymphoma
     Dosage: UNK
     Route: 048
  26. PREDNISONE [Suspect]
     Active Substance: PREDNISONE
     Dosage: UNK, QD, R-CHOP/UNK, 1X/DAY
     Route: 048
  27. PREDNISONE [Suspect]
     Active Substance: PREDNISONE
     Dosage: 100 MG (REGIMEN #2: 100 MG, QD)/ 100 MG, 1X/DAY
     Route: 048
     Dates: start: 20220503, end: 20220506
  28. PREDNISONE [Suspect]
     Active Substance: PREDNISONE
     Dosage: UNK
     Route: 048
  29. PREDNISONE [Suspect]
     Active Substance: PREDNISONE
     Dosage: 100 MG, 1X/DAY
     Dates: start: 20220503, end: 20220506
  30. PREDNISONE [Suspect]
     Active Substance: PREDNISONE
     Dosage: UNK UNK, 1X/DAY (QD)
     Route: 065
     Dates: start: 20220503, end: 20220506
  31. PREDNISONE [Suspect]
     Active Substance: PREDNISONE
     Dosage: UNK, QD
     Route: 058
  32. PREDNISONE [Suspect]
     Active Substance: PREDNISONE
     Dosage: 100 MILLIGRAM, QD/100 MG, 1X/DAY
     Route: 048
     Dates: start: 20220426, end: 20220429
  33. PREDNISONE [Suspect]
     Active Substance: PREDNISONE
     Dosage: 1000 UNK
     Route: 048
     Dates: start: 20220420, end: 20220423
  34. PREDNISONE [Suspect]
     Active Substance: PREDNISONE
     Dosage: 100 MG, QD
     Route: 048
     Dates: start: 20220420, end: 20220429
  35. PREDNISONE [Suspect]
     Active Substance: PREDNISONE
     Dosage: UNK
     Dates: start: 20220405
  36. PREDNISONE [Suspect]
     Active Substance: PREDNISONE
     Dosage: UNK
  37. PREDNISONE [Suspect]
     Active Substance: PREDNISONE
     Dosage: 100 MILLIGRAM, QD/100 MG, 1X/DAY
     Route: 048
     Dates: start: 20220420, end: 20220423
  38. PREDNISONE [Suspect]
     Active Substance: PREDNISONE
     Dosage: 100 MG, 1X/DAY (CUMULATIVE DOSE TO FIRST REACTION: 200 MG)
     Route: 048
     Dates: start: 20220420, end: 20220423
  39. PREDNISONE [Suspect]
     Active Substance: PREDNISONE
     Dosage: 100 MG, 1X/DAY (CUMULATIVE DOSE TO FIRST REACTION: 200 MG)
     Route: 048
     Dates: start: 20220426, end: 20220429
  40. PREDNISONE [Suspect]
     Active Substance: PREDNISONE
     Dosage: 100 MG, 1X/DAY (CUMULATIVE DOSE TO FIRST REACTION: 200 MG)
     Route: 048
     Dates: start: 20220503, end: 20220506
  41. PREDNISONE [Suspect]
     Active Substance: PREDNISONE
     Dosage: UNK, 1X/DAY (CUMULATIVE DOSE TO FIRST REACTION: 200 MG)
     Route: 048
  42. VINCRISTINE [Suspect]
     Active Substance: VINCRISTINE
     Indication: Diffuse large B-cell lymphoma stage III
     Dosage: UNK, 1Q3W
     Route: 042
  43. VINCRISTINE [Suspect]
     Active Substance: VINCRISTINE
     Dosage: 1.4 MG/M2 EVERY 3 WEEKS
     Route: 042
     Dates: start: 20220419, end: 20220419
  44. DOXORUBICIN [Suspect]
     Active Substance: DOXORUBICIN
     Indication: Diffuse large B-cell lymphoma stage III
     Dosage: UNK, 1Q3W
     Route: 042
  45. DOXORUBICIN [Suspect]
     Active Substance: DOXORUBICIN
     Indication: Diffuse large B-cell lymphoma
     Dosage: UNK, EVERY 3 WEEKS/UNK, EVERY 3 WK, R-CHOP
     Route: 042
  46. DOXORUBICIN [Suspect]
     Active Substance: DOXORUBICIN
     Dosage: 50 MG/M2, EVERY 3 WEEKS/ UNK, EVERY 3 WK, R-CHOP
     Route: 042
     Dates: start: 20220419, end: 20220419
  47. DOXORUBICIN [Suspect]
     Active Substance: DOXORUBICIN
     Dosage: 50 MG/M2, EVERY 3 WEEKS, R-CHOP
     Route: 042
     Dates: start: 20220419
  48. CYCLOPHOSPHAMIDE [Suspect]
     Active Substance: CYCLOPHOSPHAMIDE
     Indication: Diffuse large B-cell lymphoma stage III
     Dosage: UNK, EVERY 3 WK, R-CHOP
     Route: 042
     Dates: start: 20220419, end: 20220419
  49. CYCLOPHOSPHAMIDE [Suspect]
     Active Substance: CYCLOPHOSPHAMIDE
     Indication: Diffuse large B-cell lymphoma
     Dosage: 750 MG/M2, EVERY 3 WEEKS, R-CHOP
     Route: 042
     Dates: start: 20220419
  50. VINCRISTINE [Suspect]
     Active Substance: VINCRISTINE
     Indication: Diffuse large B-cell lymphoma stage III
     Dosage: UNK, 1Q3W
     Route: 042
  51. VINCRISTINE [Suspect]
     Active Substance: VINCRISTINE
     Indication: Diffuse large B-cell lymphoma
     Dosage: UNK, EVERY 3 WEEKS
     Route: 042
  52. METHYLPREDNISOLONE SODIUM SUCCINATE [Suspect]
     Active Substance: METHYLPREDNISOLONE SODIUM SUCCINATE
     Indication: Diffuse large B-cell lymphoma stage III
     Dosage: 80 MG, 1X/DAY
     Route: 042
     Dates: start: 20220419, end: 20220419
  53. EPCORITAMAB [Suspect]
     Active Substance: EPCORITAMAB
     Indication: Diffuse large B-cell lymphoma stage III
     Dosage: 0.8 MG
     Route: 058
     Dates: start: 20220426, end: 20220426
  54. EPCORITAMAB [Suspect]
     Active Substance: EPCORITAMAB
     Dosage: 48 MG, 1/WEEK
     Route: 058
     Dates: start: 20220503
  55. EPCORITAMAB [Suspect]
     Active Substance: EPCORITAMAB
     Dosage: 0.16 MG
     Route: 058
     Dates: start: 20220419, end: 20220419
  56. SOLU-MEDROL [Suspect]
     Active Substance: METHYLPREDNISOLONE SODIUM SUCCINATE
     Indication: Diffuse large B-cell lymphoma stage III
     Dosage: 80 MG NEXT DOSE 19/APR/2022
     Route: 042
     Dates: start: 20220413, end: 20220419
  57. SOLU-MEDROL [Suspect]
     Active Substance: METHYLPREDNISOLONE SODIUM SUCCINATE
     Indication: Diffuse large B-cell lymphoma
     Dosage: 80 MG
     Route: 042
     Dates: start: 20220419, end: 20220419
  58. SOLU-MEDROL [Suspect]
     Active Substance: METHYLPREDNISOLONE SODIUM SUCCINATE
     Indication: Prophylaxis
     Dosage: 80 MG
     Route: 042
     Dates: start: 20220413, end: 20220418
  59. OMEPRAZOLE [Concomitant]
     Active Substance: OMEPRAZOLE
     Indication: Product used for unknown indication
     Dosage: UNK
     Dates: start: 20220426
  60. GRANISETRON HYDROCHLORIDE [Concomitant]
     Active Substance: GRANISETRON HYDROCHLORIDE
     Indication: Product used for unknown indication
     Dosage: UNK
     Dates: start: 20220422, end: 202301
  61. AMLODIPINE BESYLATE\LISINOPRIL [Concomitant]
     Active Substance: AMLODIPINE BESYLATE\LISINOPRIL
     Indication: Product used for unknown indication
     Dosage: UNK
     Dates: start: 2016, end: 20230223
  62. NADROPARIN CALCIUM [Concomitant]
     Active Substance: NADROPARIN CALCIUM
     Indication: Product used for unknown indication
     Dosage: UNK
     Dates: start: 20220414, end: 20220531
  63. ACETAMINOPHEN [Concomitant]
     Active Substance: ACETAMINOPHEN
     Indication: Premedication
     Dosage: 1000 MG
     Route: 048
     Dates: start: 20220426, end: 20220426
  64. ACETAMINOPHEN [Concomitant]
     Active Substance: ACETAMINOPHEN
     Dosage: 1000 MG
     Route: 048
     Dates: start: 20220419, end: 20220419
  65. ACETAMINOPHEN [Concomitant]
     Active Substance: ACETAMINOPHEN
     Dosage: 1000 MG
     Route: 048
     Dates: start: 20220503, end: 20220503
  66. ACETAMINOPHEN [Concomitant]
     Active Substance: ACETAMINOPHEN
     Dosage: 1000 DF
     Route: 048
     Dates: start: 20220419, end: 20220503
  67. ACETAMINOPHEN [Concomitant]
     Active Substance: ACETAMINOPHEN
     Dosage: 1000 MG
     Route: 048
     Dates: start: 20220426, end: 20220503
  68. ACETAMINOPHEN [Concomitant]
     Active Substance: ACETAMINOPHEN
     Dosage: 1000 MG
     Route: 048
     Dates: start: 20220419, end: 20220503
  69. FLUCONAZOLE [Concomitant]
     Active Substance: FLUCONAZOLE
     Indication: Product used for unknown indication
     Dosage: UNK
     Dates: start: 20220426, end: 202205
  70. POTASSIUM CHLORIDE [Concomitant]
     Active Substance: POTASSIUM CHLORIDE
     Indication: Product used for unknown indication
     Dosage: UNK
     Dates: start: 20220427, end: 20220429
  71. OXAZEPAM [Concomitant]
     Active Substance: OXAZEPAM
     Indication: Product used for unknown indication
     Dosage: UNK
     Dates: start: 20220426, end: 20220621
  72. PREDNISONE [Concomitant]
     Active Substance: PREDNISONE
     Indication: Prophylaxis
     Dosage: 100 MG/AT 10:30 HRS, 100 MG
     Route: 048
     Dates: start: 20220503, end: 20220506
  73. PREDNISONE [Concomitant]
     Active Substance: PREDNISONE
     Dosage: 100 MG
     Route: 048
     Dates: start: 20220426, end: 20220429
  74. PREDNISONE [Concomitant]
     Active Substance: PREDNISONE
     Dosage: 100 MG
     Route: 048
     Dates: start: 20220420, end: 20220423
  75. PREDNISONE [Concomitant]
     Active Substance: PREDNISONE
     Dosage: 1000 MG
     Dates: start: 20220420, end: 20220506
  76. ALLOPURINOL [Concomitant]
     Active Substance: ALLOPURINOL
     Indication: Product used for unknown indication
     Dosage: UNK
     Dates: start: 20220419, end: 20220517
  77. BISULEPIN [Concomitant]
     Active Substance: BISULEPIN
     Indication: Premedication
     Dosage: 2 MG
     Route: 048
     Dates: start: 20220426, end: 20220426
  78. BISULEPIN [Concomitant]
     Active Substance: BISULEPIN
     Dosage: 1 MG
     Route: 042
     Dates: start: 20220419, end: 20220419
  79. BISULEPIN [Concomitant]
     Active Substance: BISULEPIN
     Dosage: 2 MG
     Route: 048
     Dates: start: 20220503, end: 20220503
  80. BISULEPIN [Concomitant]
     Active Substance: BISULEPIN
     Dosage: 2 MG
     Route: 048
     Dates: start: 20220426, end: 20220503
  81. BISULEPIN [Concomitant]
     Active Substance: BISULEPIN
     Dosage: 1 DF
     Dates: start: 20220419, end: 20220503
  82. BISULEPIN [Concomitant]
     Active Substance: BISULEPIN
     Dosage: 1 MG
     Route: 042
     Dates: start: 20220419, end: 20220503
  83. TRAMADOL [Concomitant]
     Active Substance: TRAMADOL\TRAMADOL HYDROCHLORIDE
     Indication: Product used for unknown indication
     Dosage: UNK
     Dates: start: 20220405
  84. VALACYCLOVIR HYDROCHLORIDE [Concomitant]
     Active Substance: VALACYCLOVIR HYDROCHLORIDE
     Indication: Product used for unknown indication
     Dosage: UNK
     Dates: start: 20220419
  85. BISOPROLOL FUMARATE [Concomitant]
     Active Substance: BISOPROLOL FUMARATE
     Indication: Product used for unknown indication
     Dosage: UNK
     Dates: start: 2004
  86. ZALDIAR [Concomitant]
     Active Substance: ACETAMINOPHEN\TRAMADOL HYDROCHLORIDE
     Indication: Product used for unknown indication
     Dosage: UNK
     Dates: start: 20220405, end: 202301
  87. EUTHYROX [Concomitant]
     Active Substance: LEVOTHYROXINE SODIUM
     Indication: Product used for unknown indication
     Dosage: UNK
     Dates: start: 2014
  88. ONDANSETRON [Concomitant]
     Active Substance: ONDANSETRON
     Indication: Premedication
     Dosage: 8 MG
     Route: 042
     Dates: start: 20220419, end: 20220419
  89. ONDANSETRON [Concomitant]
     Active Substance: ONDANSETRON
     Dosage: 8 DF
     Dates: start: 20220419, end: 20220419
  90. SOLU-MEDROL [Concomitant]
     Active Substance: METHYLPREDNISOLONE SODIUM SUCCINATE
     Indication: Prophylaxis
     Dosage: 80 MG
     Route: 042
     Dates: start: 20220413, end: 20220418
  91. SOLU-MEDROL [Concomitant]
     Active Substance: METHYLPREDNISOLONE SODIUM SUCCINATE
     Dosage: 80 MG
     Route: 042
     Dates: start: 20220419, end: 20220419
  92. SOLU-MEDROL [Concomitant]
     Active Substance: METHYLPREDNISOLONE SODIUM SUCCINATE
     Dosage: 80 MG/NEXT DOSE 19/APR/2022
     Route: 042
     Dates: start: 20220413, end: 20220419
  93. SOLU-MEDROL [Concomitant]
     Active Substance: METHYLPREDNISOLONE SODIUM SUCCINATE
     Dosage: 80 MG/80 MG
     Route: 042
     Dates: start: 20220413, end: 20220419
  94. FILGRASTIM [Concomitant]
     Active Substance: FILGRASTIM
     Indication: Product used for unknown indication
     Dosage: UNK
     Dates: start: 20220423, end: 20220427
  95. PERINDOPRIL ARGININE [Concomitant]
     Active Substance: PERINDOPRIL ARGININE
     Indication: Product used for unknown indication
     Dosage: UNK
     Dates: start: 20220419, end: 20220516
  96. PREDNISONE [Concomitant]
     Active Substance: PREDNISONE
     Indication: Prophylaxis
     Dosage: 100 MG
     Dates: start: 20220503, end: 20220506
  97. PREDNISONE [Concomitant]
     Active Substance: PREDNISONE
     Dosage: 100 MG
     Dates: start: 20220426, end: 20220429
  98. PREDNISONE [Concomitant]
     Active Substance: PREDNISONE
     Dosage: 100 MG
     Dates: start: 20220420, end: 20220423
  99. PREDNISONE [Concomitant]
     Active Substance: PREDNISONE
     Dosage: 1000 MG
     Dates: start: 20220420, end: 20220506

REACTIONS (5)
  - Respiratory tract infection [Not Recovered/Not Resolved]
  - Cytokine release syndrome [Recovered/Resolved]
  - Pyrexia [Recovered/Resolved]
  - Atrial fibrillation [Unknown]
  - Hypertension [Unknown]

NARRATIVE: CASE EVENT DATE: 20220415
